FAERS Safety Report 18841863 (Version 1)
Quarter: 2021Q1

REPORT INFORMATION
  Report Type: Report from Study
  Country: IT (occurrence: IT)
  Receive Date: 20210204
  Receipt Date: 20210204
  Transmission Date: 20210419
  Serious: Yes (Other)
  Sender: FDA-Public Use
  Company Number: IT-TEVA-2021-IT-1874721

PATIENT
  Age: 13 Year
  Sex: Male

DRUGS (3)
  1. BLEOMYCIN [Suspect]
     Active Substance: BLEOMYCIN SULFATE
     Indication: NONGERMINOMATOUS GERM CELL TUMOUR OF THE CNS
     Dosage: PEB CHEMOTHERAPY; ON DAY 2 OF EACH CYCLE
     Route: 065
  2. ETOPOSIDE. [Suspect]
     Active Substance: ETOPOSIDE
     Indication: NONGERMINOMATOUS GERM CELL TUMOUR OF THE CNS
     Dosage: PEB CHEMOTHERAPY; ON DAYS 1?4 OF EACH CYCLE
     Route: 065
  3. CISPLATIN. [Suspect]
     Active Substance: CISPLATIN
     Indication: NONGERMINOMATOUS GERM CELL TUMOUR OF THE CNS
     Dosage: PEB CHEMOTHERAPY; ON DAYS 1?4 OF EACH CYCLE
     Route: 065

REACTIONS (1)
  - Haematotoxicity [Unknown]
